FAERS Safety Report 23133304 (Version 1)
Quarter: 2023Q4

REPORT INFORMATION
  Report Type: Spontaneous
  Country: US (occurrence: US)
  Receive Date: 20231101
  Receipt Date: 20231101
  Transmission Date: 20240110
  Serious: No
  Sender: FDA-Public Use
  Company Number: US-GSKCCFUS-Case-01839151_AE-102807

PATIENT
  Age: 75 Year
  Sex: Female

DRUGS (1)
  1. NUCALA [Suspect]
     Active Substance: MEPOLIZUMAB
     Indication: Asthma
     Dosage: 100 MG, MO
     Route: 058
     Dates: start: 2020

REACTIONS (5)
  - Fall [Unknown]
  - Pain [Not Recovered/Not Resolved]
  - Wrist fracture [Not Recovered/Not Resolved]
  - Therapy interrupted [Unknown]
  - Product storage error [Unknown]

NARRATIVE: CASE EVENT DATE: 20231018
